APPROVED DRUG PRODUCT: PARICALCITOL
Active Ingredient: PARICALCITOL
Strength: 0.005MG/ML (0.005MG/ML)
Dosage Form/Route: SOLUTION;INTRAVENOUS
Application: A204910 | Product #002 | TE Code: AP
Applicant: CAPLIN STERILES LTD
Approved: Aug 17, 2016 | RLD: No | RS: No | Type: RX